FAERS Safety Report 13226244 (Version 4)
Quarter: 2017Q2

REPORT INFORMATION
  Report Type: Spontaneous
  Country: US (occurrence: US)
  Receive Date: 20170213
  Receipt Date: 20170608
  Transmission Date: 20170830
  Serious: Yes (Hospitalization)
  Sender: FDA-Public Use
  Company Number: US-PFIZER INC-2017057247

PATIENT
  Age: 74 Year
  Sex: Female
  Weight: 141.5 kg

DRUGS (4)
  1. XELJANZ XR [Suspect]
     Active Substance: TOFACITINIB CITRATE
     Indication: ARTHRITIS
     Dosage: 20 MG, 1X/DAY
     Dates: start: 20170101
  2. XELJANZ XR [Suspect]
     Active Substance: TOFACITINIB CITRATE
     Indication: RHEUMATOID ARTHRITIS
     Dosage: 11 MG, DAILY
     Route: 048
     Dates: start: 20170101, end: 201703
  3. ZITHROMAX [Concomitant]
     Active Substance: AZITHROMYCIN DIHYDRATE
     Dosage: UNK
  4. XELJANZ XR [Suspect]
     Active Substance: TOFACITINIB CITRATE
     Indication: INFLAMMATION
     Dosage: 11 MG, 1X/DAY (ONCE DAILY IN THE MORNING)
     Route: 048
     Dates: start: 20170201

REACTIONS (13)
  - Prescribed overdose [Unknown]
  - Lymphadenopathy [Recovering/Resolving]
  - Drug ineffective [Unknown]
  - Asthenia [Recovering/Resolving]
  - Respiratory tract infection viral [Not Recovered/Not Resolved]
  - Upper respiratory tract infection [Recovering/Resolving]
  - Oral disorder [Recovered/Resolved]
  - Malaise [Unknown]
  - Eye disorder [Recovering/Resolving]
  - Bronchitis [Recovered/Resolved]
  - Chills [Recovered/Resolved]
  - Cough [Recovered/Resolved]
  - Oral infection [Unknown]

NARRATIVE: CASE EVENT DATE: 20170101
